FAERS Safety Report 23260992 (Version 4)
Quarter: 2024Q3

REPORT INFORMATION
  Report Type: Report from Study
  Country: US (occurrence: US)
  Receive Date: 20231205
  Receipt Date: 20240904
  Transmission Date: 20241017
  Serious: Yes (Hospitalization, Other)
  Sender: ABBVIE
  Company Number: US-ABBVIE-4337076

PATIENT
  Age: 51 Year
  Sex: Male
  Weight: 86 kg

DRUGS (19)
  1. VENCLEXTA [Suspect]
     Active Substance: VENETOCLAX
     Indication: Primary amyloidosis
     Dosage: TAKE 8 TABLET(S) BY MOUTH ONCE DAILY WITH A MEAL AND WATER, ?FORM STRENGTH: 100 MILLIGRAM
     Route: 048
  2. VENCLEXTA [Suspect]
     Active Substance: VENETOCLAX
     Indication: Primary amyloidosis
     Dosage: FORM STRENGTH: 100 MILLIGRAM?TAKE 4 TABLETS (400 MG) BY MOUTH IN THE MORNING WITH A MEAL AND WATER.
     Route: 048
  3. VENCLEXTA [Suspect]
     Active Substance: VENETOCLAX
     Indication: Primary amyloidosis
     Dosage: FORM STRENGTH: 100 MILLIGRAM
     Route: 048
  4. VENCLEXTA [Suspect]
     Active Substance: VENETOCLAX
     Indication: Primary amyloidosis
     Dosage: FORM STRENGTH: 100 MILLIGRAM
     Route: 048
  5. VENCLEXTA [Suspect]
     Active Substance: VENETOCLAX
     Indication: Primary amyloidosis
     Dosage: FORM STRENGTH: 100 MILLIGRAM?TAKE 4 TABLETS (400 MG) BY MOUTH IN THE MORNING WITH A MEAL AND WATER.
     Route: 048
  6. VENCLEXTA [Suspect]
     Active Substance: VENETOCLAX
     Indication: Primary amyloidosis
     Dosage: TAKE 8 TABLET(S) BY MOUTH ONCE DAILY WITH A MEAL AND WATER, ?FORM STRENGTH: 100 MILLIGRAM
     Route: 048
  7. VENCLEXTA [Suspect]
     Active Substance: VENETOCLAX
     Indication: Primary amyloidosis
     Dosage: 4 TABLETS DAILY FOR 7 DAYS,?FORM STRENGTH: 100 MILLIGRAM
     Route: 048
  8. VENCLEXTA [Suspect]
     Active Substance: VENETOCLAX
     Indication: Primary amyloidosis
     Dosage: 6 TABLETS DAILY FOR 7 DAYS?FORM STRENGTH: 100 MILLIGRAM
     Route: 048
  9. VENCLEXTA [Suspect]
     Active Substance: VENETOCLAX
     Indication: Primary amyloidosis
     Dosage: THEN 8 TABLETS DAILY THEREAFTER?FORM STRENGTH: 100 MILLIGRAM
     Route: 048
  10. VENCLEXTA [Suspect]
     Active Substance: VENETOCLAX
     Indication: Primary amyloidosis
     Dosage: TAKE 2 TABLETS BY MOUTH DAILY FOR 7 DAYS,?FORM STRENGTH: 100 MILLIGRAM
     Route: 048
  11. VENCLEXTA [Suspect]
     Active Substance: VENETOCLAX
     Indication: Primary amyloidosis
     Dosage: TAKE 4 TABLET DAILY FORM STRENGTH:100MG
     Route: 048
     Dates: start: 20210803, end: 20231127
  12. VENCLEXTA [Suspect]
     Active Substance: VENETOCLAX
     Indication: Primary amyloidosis
     Route: 048
     Dates: start: 20240527
  13. DEXAMETHASONE [Concomitant]
     Active Substance: DEXAMETHASONE
     Indication: Product used for unknown indication
     Dosage: 12 MG WEEKLY
  14. ALLOPURINOL [Concomitant]
     Active Substance: ALLOPURINOL
     Indication: Product used for unknown indication
  15. SIMVASTATIN [Concomitant]
     Active Substance: SIMVASTATIN
     Indication: Product used for unknown indication
  16. AMLODIPINE [Concomitant]
     Active Substance: AMLODIPINE BESYLATE
     Indication: Product used for unknown indication
  17. SILDENAFIL [Concomitant]
     Active Substance: SILDENAFIL
     Indication: Product used for unknown indication
     Dosage: 100 MG AS NEEDED
  18. LISINOPRIL [Concomitant]
     Active Substance: LISINOPRIL
     Indication: Product used for unknown indication
     Dosage: 20-12.5 MG DAILY
  19. VALACYCLOVIR [Concomitant]
     Active Substance: VALACYCLOVIR HYDROCHLORIDE
     Indication: Product used for unknown indication

REACTIONS (7)
  - Localised infection [Unknown]
  - Off label use [Unknown]
  - Localised infection [Recovered/Resolved]
  - Osteomyelitis [Unknown]
  - Wound [Unknown]
  - Unevaluable event [Unknown]
  - Skin laceration [Unknown]

NARRATIVE: CASE EVENT DATE: 20231124
